FAERS Safety Report 9978985 (Version 1)
Quarter: 2014Q1

REPORT INFORMATION
  Report Type: Report from Study
  Country: US (occurrence: US)
  Receive Date: 20140306
  Receipt Date: 20140306
  Transmission Date: 20141002
  Serious: No
  Sender: FDA-Public Use
  Company Number: US-ABBVIE-13P-163-1173790-00

PATIENT
  Age: 76 Year
  Sex: Male

DRUGS (3)
  1. HUMIRA [Suspect]
     Indication: CROHN^S DISEASE
     Dosage: DAY ONE
     Dates: start: 20131011, end: 20131011
  2. HUMIRA [Suspect]
     Indication: CROHN^S DISEASE
     Dosage: DAY 15
     Dates: start: 20131028, end: 20131028
  3. HUMIRA [Suspect]
     Dates: start: 2013

REACTIONS (1)
  - Inappropriate schedule of drug administration [Recovered/Resolved]
